FAERS Safety Report 14619518 (Version 1)
Quarter: 2018Q1

REPORT INFORMATION
  Report Type: Spontaneous
  Country: US (occurrence: US)
  Receive Date: 20180309
  Receipt Date: 20180309
  Transmission Date: 20180509
  Serious: Yes (Hospitalization, Other)
  Sender: FDA-Public Use
  Company Number: US-ASTRAZENECA-2018SE27586

PATIENT
  Age: 65 Year
  Sex: Female
  Weight: 78.5 kg

DRUGS (2)
  1. BYDUREON [Suspect]
     Active Substance: EXENATIDE
     Indication: DIABETES MELLITUS
     Route: 058
  2. METOPROLOL TARTRATE. [Suspect]
     Active Substance: METOPROLOL TARTRATE
     Route: 065

REACTIONS (3)
  - Myocardial infarction [Unknown]
  - Vomiting [Unknown]
  - Drug dose omission [Unknown]

NARRATIVE: CASE EVENT DATE: 2006
